FAERS Safety Report 5257960-9 (Version None)
Quarter: 2007Q1

REPORT INFORMATION
  Report Type: 
  Country: None (occurrence: None)
  Receive Date: 20070307
  Receipt Date: 20061114
  Transmission Date: 20070707
  Serious: No
  Sender: FDA-Public Use
  Company Number: US-GLAXOSMITHKLINE-A0627466A

PATIENT
  Age: 66 Year
  Sex: Female

DRUGS (9)
  1. REQUIP [Suspect]
     Indication: RESTLESS LEGS SYNDROME
     Dosage: .25MG PER DAY
     Route: 048
  2. ESTRADIOL [Concomitant]
  3. UNKNOWN MEDICATION [Concomitant]
  4. FIORICET [Concomitant]
  5. MULTI-VITAMIN [Concomitant]
  6. CALCIUM + VIT D [Concomitant]
  7. MAGNESIUM [Concomitant]
  8. COMPLEX 2000 [Concomitant]
  9. EXCEDRIN (MIGRAINE) [Concomitant]

REACTIONS (3)
  - FEELING ABNORMAL [None]
  - INSOMNIA [None]
  - PARADOXICAL DRUG REACTION [None]
